FAERS Safety Report 12326373 (Version 1)
Quarter: 2016Q2

REPORT INFORMATION
  Report Type: Spontaneous
  Country: None (occurrence: None)
  Receive Date: 20160502
  Receipt Date: 20160502
  Transmission Date: 20160815
  Serious: Yes (Other)
  Sender: FDA-Public Use
  Company Number: None

PATIENT
  Age: 65 Year
  Sex: Female

DRUGS (3)
  1. ESTROGENS [Concomitant]
     Active Substance: ESTROGENS
  2. ARMOUR THYROID [Suspect]
     Active Substance: THYROID, PORCINE
  3. OSPHENA [Suspect]
     Active Substance: OSPEMIFENE

REACTIONS (4)
  - Drug interaction [None]
  - Menopausal symptoms [None]
  - Hepatic function abnormal [None]
  - Hypothyroidism [None]
